FAERS Safety Report 10156262 (Version 1)
Quarter: 2014Q2

REPORT INFORMATION
  Report Type: Spontaneous
  Country: US (occurrence: US)
  Receive Date: 20140507
  Receipt Date: 20140507
  Transmission Date: 20141212
  Serious: No
  Sender: FDA-Public Use
  Company Number: US-009507513-1405USA002841

PATIENT
  Sex: Male

DRUGS (2)
  1. NASONEX [Suspect]
     Indication: FACE INJURY
  2. NASACORT [Concomitant]
     Indication: FACE INJURY

REACTIONS (1)
  - Therapeutic response decreased [Unknown]
